FAERS Safety Report 5803686-X (Version None)
Quarter: 2008Q3

REPORT INFORMATION
  Report Type: 
  Country: None (occurrence: None)
  Receive Date: 20080708
  Receipt Date: 20070730
  Transmission Date: 20090109
  Serious: Yes (Other)
  Sender: FDA-Public Use
  Company Number: US-AMGEN-US236454

PATIENT
  Sex: Female

DRUGS (1)
  1. KINERET [Suspect]
     Indication: RHEUMATOID ARTHRITIS
     Dates: start: 20070601, end: 20070701

REACTIONS (5)
  - HEADACHE [None]
  - INJECTION SITE REACTION [None]
  - PRURITUS [None]
  - URTICARIA [None]
  - WHEEZING [None]
